FAERS Safety Report 9478116 (Version 2)
Quarter: 2013Q3

REPORT INFORMATION
  Report Type: Spontaneous
  Country: US (occurrence: None)
  Receive Date: 20130821
  Receipt Date: 20130829
  Transmission Date: 20140515
  Serious: Yes (Death)
  Sender: FDA-Public Use
  Company Number: AUR-APL-2013-06821

PATIENT
  Age: 47 Year
  Sex: Male
  Weight: 162 kg

DRUGS (9)
  1. LISINOPRIL (LISINOPRIL) [Suspect]
     Indication: PRODUCT USED FOR UNKNOWN INDICATION
  2. PROCARDIA XL (INIFEDIPINE) [Suspect]
     Indication: HYPERTENSION
     Dates: start: 20100114, end: 20120406
  3. HUMULIN (HUMAN MIXTARD) [Concomitant]
  4. LANTUS (INSULIN GLARGINE ) [Concomitant]
  5. METOPROLOL (METOPROLOL) [Concomitant]
  6. CLOPIDOGREL BISULFATE (CLOPIDOGREL BISULFATE) [Concomitant]
  7. ASPIRIN (ACETYLSALCYLIC ACID) [Concomitant]
  8. FUROSEMIDE (FUROSEMIDE) [Concomitant]
  9. CRESTOR (ROSUVATATIN CALCIUM) [Concomitant]

REACTIONS (2)
  - Documented hypersensitivity to administered drug [None]
  - Wrong drug administered [None]
